FAERS Safety Report 25149516 (Version 1)
Quarter: 2025Q2

REPORT INFORMATION
  Report Type: Spontaneous
  Country: TN (occurrence: TN)
  Receive Date: 20250402
  Receipt Date: 20250402
  Transmission Date: 20250717
  Serious: Yes (Hospitalization, Other)
  Sender: GLAND PHARMA
  Company Number: TN-GLANDPHARMA-TN-2025GLNLIT00855

PATIENT
  Age: 61 Year
  Sex: Male

DRUGS (2)
  1. CISPLATIN [Suspect]
     Active Substance: CISPLATIN
     Indication: Lung adenocarcinoma
     Route: 065
  2. PEMETREXED [Suspect]
     Active Substance: PEMETREXED
     Indication: Lung adenocarcinoma
     Route: 065

REACTIONS (2)
  - Pancreatitis acute [Recovered/Resolved]
  - Product use in unapproved indication [Unknown]
